FAERS Safety Report 19269027 (Version 1)
Quarter: 2021Q2

REPORT INFORMATION
  Report Type: Spontaneous
  Country: US (occurrence: US)
  Receive Date: 20210517
  Receipt Date: 20210517
  Transmission Date: 20210717
  Serious: No
  Sender: FDA-Public Use
  Company Number: US-HORIZON-2021HZN00491

PATIENT
  Sex: Female

DRUGS (1)
  1. TEPEZZA [Suspect]
     Active Substance: TEPROTUMUMAB-TRBW
     Indication: PRODUCT USED FOR UNKNOWN INDICATION
     Dosage: UNK
     Route: 065

REACTIONS (6)
  - Hypertension [Unknown]
  - Vision blurred [Unknown]
  - Headache [Recovered/Resolved]
  - Nausea [Unknown]
  - Tinnitus [Unknown]
  - Fatigue [Unknown]
